FAERS Safety Report 5950074-1 (Version None)
Quarter: 2008Q4

REPORT INFORMATION
  Report Type: 
  Country: None (occurrence: None)
  Receive Date: 20081112
  Receipt Date: 20081103
  Transmission Date: 20090506
  Serious: Yes (Other)
  Sender: FDA-Public Use
  Company Number: US-AMGEN-US315132

PATIENT
  Age: 64 Year
  Sex: Male
  Weight: 86.3 kg

DRUGS (8)
  1. NPLATE [Suspect]
     Indication: IDIOPATHIC THROMBOCYTOPENIC PURPURA
     Route: 065
     Dates: start: 20081008
  2. CYCLOPHOSPHAMIDE [Concomitant]
     Route: 065
     Dates: start: 20080905
  3. ADRIAMYCIN PFS [Concomitant]
     Route: 065
     Dates: start: 20080905
  4. VINCRISTINE [Concomitant]
     Route: 065
     Dates: start: 20080905
  5. PREDNISONE TAB [Concomitant]
     Route: 065
     Dates: start: 20080905
  6. RITUXAN [Concomitant]
     Dates: start: 20080905
  7. NEUPOGEN [Concomitant]
     Dates: start: 20080908
  8. PROCRIT [Concomitant]

REACTIONS (1)
  - THERAPEUTIC RESPONSE DECREASED [None]
